FAERS Safety Report 9698029 (Version 1)
Quarter: 2013Q4

REPORT INFORMATION
  Report Type: Spontaneous
  Country: BE (occurrence: None)
  Receive Date: 20131114
  Receipt Date: 20131114
  Transmission Date: 20140711
  Serious: Yes (Other)
  Sender: FDA-Public Use
  Company Number: 2013038833

PATIENT
  Sex: 0

DRUGS (1)
  1. HIZENTRA [Suspect]
     Dosage: 30 ML, 30 ML (6 G); FREQUENCY NOT MENTIONED SUBCUTANEOUS
     Route: 058
     Dates: start: 20130610

REACTIONS (3)
  - Mental impairment [None]
  - Feeling abnormal [None]
  - Injection site scar [None]
